FAERS Safety Report 5233363-8 (Version None)
Quarter: 2007Q1

REPORT INFORMATION
  Report Type: 
  Country: None (occurrence: None)
  Receive Date: 20070206
  Receipt Date: 20070206
  Transmission Date: 20070707
  Serious: Yes (Other)
  Sender: FDA-Public Use
  Company Number: None

PATIENT
  Age: 46 Year
  Sex: Female
  Weight: 72.5755 kg

DRUGS (6)
  1. CIPRO [Suspect]
     Indication: URINARY TRACT INFECTION
     Dosage: 1  250 MG TABLET  1 X DAY  PO
     Route: 048
     Dates: start: 20060602, end: 20061130
  2. IBUPROFEN [Concomitant]
  3. VICODIN [Concomitant]
  4. PREDNISONE TAB [Concomitant]
  5. XANAX [Concomitant]
  6. MAGNESIUM [Concomitant]

REACTIONS (10)
  - ARTHRALGIA [None]
  - BURNING SENSATION [None]
  - FLANK PAIN [None]
  - HYPOAESTHESIA [None]
  - MALAISE [None]
  - PAIN [None]
  - PAIN IN EXTREMITY [None]
  - PARAESTHESIA [None]
  - SOFT TISSUE DISORDER [None]
  - TRIGGER FINGER [None]
